FAERS Safety Report 17300203 (Version 1)
Quarter: 2020Q1

REPORT INFORMATION
  Report Type: Spontaneous
  Country: IN (occurrence: IN)
  Receive Date: 20200122
  Receipt Date: 20200122
  Transmission Date: 20200409
  Serious: Yes (Hospitalization, Other)
  Sender: FDA-Public Use
  Company Number: IN-LEADING PHARMA LLC-IN-2020LEALIT00003

PATIENT
  Age: 60 Year
  Sex: Female

DRUGS (13)
  1. AMLODIPINE [Concomitant]
     Active Substance: AMLODIPINE BESYLATE
  2. ATORVASTATIN [Concomitant]
     Active Substance: ATORVASTATIN
  3. METFORMIN [Concomitant]
     Active Substance: METFORMIN HYDROCHLORIDE
  4. FUROSEMIDE TABLETS USP [Suspect]
     Active Substance: FUROSEMIDE
  5. INSULIN [Concomitant]
     Active Substance: INSULIN NOS
  6. ACETYLSALICYLIC ACID [Suspect]
     Active Substance: ASPIRIN
  7. ENALAPRIL [Concomitant]
     Active Substance: ENALAPRIL
  8. CLOPIDOGREL [Concomitant]
     Active Substance: CLOPIDOGREL BISULFATE
  9. CALCIUM GLUCONATE. [Concomitant]
     Active Substance: CALCIUM GLUCONATE
  10. PANTOPRAZOLE [Concomitant]
     Active Substance: PANTOPRAZOLE
  11. HEPARIN [Concomitant]
     Active Substance: HEPARIN SODIUM
  12. ATENOLOL. [Concomitant]
     Active Substance: ATENOLOL
  13. NITROGLYCERIN. [Concomitant]
     Active Substance: NITROGLYCERIN

REACTIONS (2)
  - Chronic kidney disease [Unknown]
  - Drug interaction [Unknown]
